FAERS Safety Report 18769743 (Version 1)
Quarter: 2021Q1

REPORT INFORMATION
  Report Type: Spontaneous
  Country: US (occurrence: US)
  Receive Date: 20210121
  Receipt Date: 20210121
  Transmission Date: 20210419
  Serious: Yes (Hospitalization)
  Sender: FDA-Public Use
  Company Number: US-TEVA-2021-US-1869999

PATIENT
  Age: 42 Year
  Sex: Male

DRUGS (1)
  1. IBUPROFEN. [Suspect]
     Active Substance: IBUPROFEN
     Indication: ARTHRALGIA
     Route: 065

REACTIONS (4)
  - Renal failure [Recovering/Resolving]
  - Nephrotic syndrome [Recovering/Resolving]
  - Oliguria [Recovering/Resolving]
  - Mesangioproliferative glomerulonephritis [Recovering/Resolving]
